FAERS Safety Report 6793288-3 (Version None)
Quarter: 2010Q2

REPORT INFORMATION
  Report Type: 
  Country: None (occurrence: None)
  Receive Date: 20100624
  Receipt Date: 20091109
  Transmission Date: 20101027
  Serious: Yes (Other)
  Sender: FDA-Public Use
  Company Number: US-MYLANLABS-2009S1018537

PATIENT
  Age: 28 Year
  Sex: Female
  Weight: 127.01 kg

DRUGS (14)
  1. CLOZAPINE [Suspect]
     Indication: BIPOLAR DISORDER
     Route: 048
     Dates: start: 20090723, end: 20091022
  2. CLOZAPINE [Suspect]
     Indication: PSYCHOTIC DISORDER
     Route: 048
     Dates: start: 20090723, end: 20091022
  3. WELLBUTRIN SR [Concomitant]
     Route: 048
  4. SENALAX /00142208/ [Concomitant]
     Route: 048
  5. AUGMENTIN '125' [Concomitant]
     Route: 048
     Dates: start: 20090930, end: 20091007
  6. DOXYCYCLINE [Concomitant]
     Indication: EAR INFECTION
     Route: 048
     Dates: start: 20090926, end: 20091005
  7. AMBIEN [Concomitant]
     Route: 048
  8. DEPAKOTE ER [Concomitant]
     Route: 048
  9. ENABLEX [Concomitant]
     Route: 048
  10. LORATADINE [Concomitant]
     Route: 048
  11. MUCINEX [Concomitant]
  12. ANTIHISTAMINES [Concomitant]
  13. ALBUTEROL [Concomitant]
     Route: 055
  14. COLACE [Concomitant]

REACTIONS (1)
  - GRANULOCYTOPENIA [None]
